FAERS Safety Report 6181804-4 (Version None)
Quarter: 2009Q2

REPORT INFORMATION
  Report Type: 
  Country: None (occurrence: None)
  Receive Date: 20090506
  Receipt Date: 20090423
  Transmission Date: 20091009
  Serious: Yes (Other)
  Sender: FDA-Public Use
  Company Number: PHHY2009GB16174

PATIENT
  Sex: Male

DRUGS (80)
  1. CLOZARIL [Suspect]
     Dosage: 150 MG, BID
     Dates: start: 20020701
  2. CLOZARIL [Suspect]
     Dosage: 250 MG, BID
  3. CLOZARIL [Suspect]
     Dosage: 300 MG+600 MG OD
     Dates: start: 20020901, end: 20021201
  4. CLOZARIL [Suspect]
     Dosage: 250 MG+300 MG OD
     Dates: start: 20030201, end: 20030401
  5. CLOZARIL [Suspect]
     Dosage: 300 MG, BID
     Dates: start: 20030601, end: 20040601
  6. CLOZARIL [Suspect]
     Dosage: 150 MG+200 MG OD
     Dates: start: 20040801
  7. CLOZARIL [Suspect]
     Dosage: 100 MG+300 MG OD
     Dates: start: 20040201
  8. CLOZARIL [Suspect]
     Dosage: 100 MG+500 MG OD
     Dates: start: 20040401
  9. CLOZARIL [Suspect]
     Dosage: 100 MG, BID
     Dates: start: 20050101
  10. CLOZARIL [Suspect]
     Dosage: TITRATION
     Dates: start: 20051101
  11. CLOZARIL [Suspect]
     Dosage: 50 MG+400 MG OD
     Dates: start: 20051201
  12. CLOZARIL [Suspect]
     Dosage: 100 MG+300 MG OD
     Dates: start: 20050201
  13. CLOZARIL [Suspect]
     Dosage: 100 MG+500 MG OD
     Dates: start: 20050401
  14. CLOZARIL [Suspect]
     Dosage: 100 MG+500 MG OD
     Dates: start: 20060801
  15. CLOZARIL [Suspect]
     Dosage: 150 MG+ 500 MG OD
     Dates: start: 20061001
  16. CLOZARIL [Suspect]
     Dosage: 300 MG, BID
     Dates: end: 20070801
  17. CLOZARIL [Suspect]
     Dosage: 275 MG+300 MG OD
     Dates: start: 20070801, end: 20080701
  18. CLOZARIL [Suspect]
     Dosage: 225 MG+300 MG OD
     Dates: start: 20080801
  19. CLOZARIL [Suspect]
     Dosage: VARIABLE DOSE
     Dates: start: 20081101, end: 20090301
  20. CLOZARIL [Suspect]
     Dosage: 525 MG DAILY
     Dates: start: 20090313
  21. SERTRALINE HCL [Concomitant]
     Dosage: 200 MG, QD
     Dates: start: 20020701, end: 20030201
  22. SERTRALINE HCL [Concomitant]
     Dosage: 150 MG, QD
     Dates: start: 20030201
  23. SERTRALINE HCL [Concomitant]
     Dosage: 100 MG, QD
     Dates: start: 20030401, end: 20030401
  24. HYOSCINE HBR HYT [Concomitant]
     Dosage: 300 UG, QD
     Dates: start: 20020801
  25. HYOSCINE HBR HYT [Concomitant]
     Dosage: 300 MCG+600 MCG OD
     Dates: start: 20020901, end: 20021201
  26. HYOSCINE HBR HYT [Concomitant]
     Dosage: UNK
     Dates: start: 20030401, end: 20041201
  27. BENZHEXOL [Concomitant]
     Dosage: 3 MG, BID
     Dates: start: 20030201
  28. CITALOPRAM HYDROBROMIDE [Concomitant]
     Dosage: UNK
     Dates: start: 20030601
  29. CITALOPRAM HYDROBROMIDE [Concomitant]
     Dosage: 20 MG, QD
     Dates: start: 20050101
  30. CITALOPRAM HYDROBROMIDE [Concomitant]
     Dosage: 10 MG, QD
     Dates: start: 20050201
  31. CITALOPRAM HYDROBROMIDE [Concomitant]
     Dosage: 20 MG, QD
     Dates: start: 20050601
  32. CITALOPRAM HYDROBROMIDE [Concomitant]
     Dosage: 40 MG, QD
     Dates: start: 20060801, end: 20070601
  33. CITALOPRAM HYDROBROMIDE [Concomitant]
     Dosage: 20 MG, QD
     Dates: start: 20070701
  34. ARIPIPRAZOLE [Concomitant]
     Dosage: 10 MG, QD
     Dates: start: 20050201
  35. ARIPIPRAZOLE [Concomitant]
     Dosage: 20 MG, QD
     Dates: end: 20050301
  36. ARIPIPRAZOLE [Concomitant]
     Dosage: 5 MG, QD
     Dates: start: 20050701
  37. ARIPIPRAZOLE [Concomitant]
     Dosage: 10 MG, QD
  38. ARIPIPRAZOLE [Concomitant]
     Dosage: 20 MG, QD
     Dates: end: 20050801
  39. ARIPIPRAZOLE [Concomitant]
     Dosage: 20 MG, QD
     Dates: start: 20050901
  40. ARIPIPRAZOLE [Concomitant]
     Dosage: 15 MG, QD
     Dates: start: 20051001
  41. ARIPIPRAZOLE [Concomitant]
     Dosage: 10 MG, QD
  42. ARIPIPRAZOLE [Concomitant]
     Dosage: 10 MG, QD
     Dates: start: 20051201
  43. ARIPIPRAZOLE [Concomitant]
     Dosage: 10 MG, QD
     Dates: start: 20060201, end: 20060401
  44. ARIPIPRAZOLE [Concomitant]
     Dosage: 5 MG, QD
     Dates: start: 20080601
  45. RISPERIDONE [Concomitant]
     Dosage: 1 MG
     Dates: start: 20050401
  46. RISPERIDONE [Concomitant]
     Dosage: 2 MG, BID
     Dates: start: 20050501
  47. RISPERIDONE [Concomitant]
     Dosage: 3 MG, BID
  48. RISPERIDONE [Concomitant]
     Dosage: 3 MG, TID
     Dates: start: 20050701
  49. RISPERIDONE [Concomitant]
     Dosage: 3 MG, BID
     Dates: start: 20050701
  50. RISPERIDONE [Concomitant]
     Dosage: 3 MG ON
  51. RISPERIDONE [Concomitant]
     Dosage: 2 MG, QD
     Dates: start: 20050801
  52. RISPERIDONE [Concomitant]
     Dosage: 1 MG ON
     Dates: end: 20050801
  53. SULPIRIDE [Concomitant]
     Dosage: 200 MG, BID
     Dates: start: 20060401
  54. SULPIRIDE [Concomitant]
     Dosage: 400 MG, BID
     Dates: start: 20060601, end: 20060901
  55. AMISULPRIDE [Concomitant]
     Dosage: 200 MG, BID
     Dates: start: 20061001
  56. AMISULPRIDE [Concomitant]
     Dosage: 300 MG, BID
     Dates: end: 20070501
  57. AMISULPRIDE [Concomitant]
     Dosage: 150 MG, BID
     Dates: start: 20070601
  58. AMISULPRIDE [Concomitant]
     Dosage: 150 MG, QD
  59. AMITRIPTLINE HYDROCHLORIDE TAB [Concomitant]
     Dosage: 25 MG ON
     Dates: start: 20060101
  60. AMITRIPTLINE HYDROCHLORIDE TAB [Concomitant]
     Dosage: 25 MG, BID
     Dates: start: 20070101
  61. PROPANTHELINE [Concomitant]
     Dosage: 15 MG, BID
     Dates: start: 20070801, end: 20070301
  62. PROPANTHELINE [Concomitant]
     Dosage: 15 MG, QD
     Dates: start: 20070401
  63. CLOMIPRAMINE HCL [Concomitant]
     Dosage: 50 MG, BID
     Dates: start: 20080801
  64. DIAZEPAM [Concomitant]
     Dosage: 20 MG, BID
     Dates: start: 20090101
  65. DIAZEPAM [Concomitant]
     Dosage: 5 MG, BID
     Dates: start: 20090201
  66. DIAZEPAM [Concomitant]
     Dosage: 5 MG ONUNK
  67. ESCITALOPRAM [Concomitant]
     Dosage: 5 MG, QD
     Dates: start: 20050301
  68. ESCITALOPRAM [Concomitant]
     Dosage: 10 MG, QD
     Dates: start: 20050401
  69. ESCITALOPRAM [Concomitant]
     Dosage: 20 MG, QD
  70. ESCITALOPRAM [Concomitant]
     Dosage: 10 MG, QD
     Dates: start: 20050501, end: 20050501
  71. ZOPICLONE [Concomitant]
     Dosage: 7.5 MG ON
     Dates: start: 20050301
  72. ZOPICLONE [Concomitant]
     Dosage: 15 MG ON
     Dates: start: 20050401, end: 20050501
  73. TEMAZEPAM [Concomitant]
     Dosage: 20 MG ON
     Dates: start: 20050501
  74. TEMAZEPAM [Concomitant]
     Dosage: 30 MG ON
     Dates: start: 20050701
  75. TEMAZEPAM [Concomitant]
     Dosage: 20 MG ON
     Dates: start: 20050801, end: 20051101
  76. TEMAZEPAM [Concomitant]
     Dosage: 10 MG ON
     Dates: start: 20051201
  77. HALOPERIDOL [Concomitant]
     Dosage: 5 MG, BID
     Dates: start: 20050901
  78. MIRTAZAPINE [Concomitant]
     Dosage: 15 MG ON
     Dates: start: 20050501
  79. OLANZAPINE [Concomitant]
     Dosage: 5 MG, BID
     Dates: start: 20051001
  80. OLANZAPINE [Concomitant]
     Dosage: 5 MG, QD
     Dates: end: 20051101

REACTIONS (33)
  - ABNORMAL BEHAVIOUR [None]
  - AGGRESSION [None]
  - AGITATION [None]
  - ANGER [None]
  - ANXIETY [None]
  - BLOOD PROLACTIN INCREASED [None]
  - COMMUNICATION DISORDER [None]
  - COMPULSIONS [None]
  - CONDITION AGGRAVATED [None]
  - CONFUSIONAL STATE [None]
  - DELUSION [None]
  - DEPRESSED LEVEL OF CONSCIOUSNESS [None]
  - DEPRESSED MOOD [None]
  - DISABILITY [None]
  - DISTURBANCE IN ATTENTION [None]
  - EMOTIONAL DISTRESS [None]
  - EXTRAPYRAMIDAL DISORDER [None]
  - FAECAL INCONTINENCE [None]
  - FEAR [None]
  - GENERAL PHYSICAL HEALTH DETERIORATION [None]
  - HALLUCINATION [None]
  - HALLUCINATION, AUDITORY [None]
  - HOMICIDAL IDEATION [None]
  - MALAISE [None]
  - OBSESSIVE-COMPULSIVE DISORDER [None]
  - PARANOIA [None]
  - PSYCHOMOTOR RETARDATION [None]
  - SALIVARY HYPERSECRETION [None]
  - SEDATION [None]
  - SOMNOLENCE [None]
  - SUICIDAL IDEATION [None]
  - SUSPICIOUSNESS [None]
  - URINARY INCONTINENCE [None]
